FAERS Safety Report 19868917 (Version 2)
Quarter: 2021Q4

REPORT INFORMATION
  Report Type: Spontaneous
  Country: CA (occurrence: CA)
  Receive Date: 20210922
  Receipt Date: 20211025
  Transmission Date: 20220303
  Serious: Yes (Other)
  Sender: FDA-Public Use
  Company Number: CA-PFIZER INC-202101189842

PATIENT
  Age: 17 Year
  Sex: Male

DRUGS (1)
  1. SOLU-MEDROL [Suspect]
     Active Substance: METHYLPREDNISOLONE SODIUM SUCCINATE
     Dosage: 1 DF
     Route: 065

REACTIONS (4)
  - Crohn^s disease [Unknown]
  - Anaemia [Unknown]
  - Therapeutic response decreased [Unknown]
  - Weight decreased [Unknown]
